FAERS Safety Report 5495534-5 (Version None)
Quarter: 2007Q4

REPORT INFORMATION
  Report Type: 
  Country: None (occurrence: None)
  Receive Date: 20071018
  Receipt Date: 20070109
  Transmission Date: 20080405
  Serious: Yes (Other)
  Sender: FDA-Public Use
  Company Number: 2005128852

PATIENT
  Age: 51 Year
  Sex: Male

DRUGS (2)
  1. NEURONTIN [Suspect]
     Indication: DEPRESSION
  2. ALL OTHER THERAPEUTIC PRODUCTS (ALL OTHER THERAPEUTIC PRODUCTS) [Suspect]
     Indication: ILL-DEFINED DISORDER

REACTIONS (12)
  - ANGER [None]
  - COGNITIVE DISORDER [None]
  - DECREASED INTEREST [None]
  - DEPRESSION [None]
  - DISTURBANCE IN ATTENTION [None]
  - DRUG INEFFECTIVE FOR UNAPPROVED INDICATION [None]
  - FEELING OF DESPAIR [None]
  - HYPERTENSION [None]
  - INSOMNIA [None]
  - MENTAL STATUS CHANGES [None]
  - SUICIDAL IDEATION [None]
  - SUICIDE ATTEMPT [None]
